FAERS Safety Report 4978360-2 (Version None)
Quarter: 2006Q2

REPORT INFORMATION
  Report Type: 
  Country: None (occurrence: None)
  Receive Date: 20060420
  Receipt Date: 20060306
  Transmission Date: 20061013
  Serious: Yes (Life-Threatening)
  Sender: FDA-Public Use
  Company Number: JP-BRISTOL-MYERS SQUIBB COMPANY-13305248

PATIENT
  Age: 47 Year
  Sex: Male

DRUGS (4)
  1. PARAPLATIN [Suspect]
     Indication: NON-HODGKIN'S LYMPHOMA
     Route: 042
  2. VEPESID [Suspect]
     Indication: NON-HODGKIN'S LYMPHOMA
     Route: 042
  3. ENDOXAN [Concomitant]
     Indication: NON-HODGKIN'S LYMPHOMA
     Route: 042
  4. CYMERIN [Concomitant]
     Indication: NON-HODGKIN'S LYMPHOMA
     Route: 042

REACTIONS (1)
  - INTERSTITIAL LUNG DISEASE [None]
